FAERS Safety Report 25169101 (Version 1)
Quarter: 2025Q2

REPORT INFORMATION
  Report Type: Spontaneous
  Country: US (occurrence: None)
  Receive Date: 20250407
  Receipt Date: 20250407
  Transmission Date: 20250716
  Serious: No
  Sender: FDA-CTU
  Company Number: None

PATIENT
  Age: 69 Year
  Sex: Female

DRUGS (1)
  1. GATTEX [Suspect]
     Active Substance: TEDUGLUTIDE\WATER
     Indication: Short-bowel syndrome
     Dosage: 5MG QD INJECTABLE?
     Route: 050
     Dates: start: 20180730

REACTIONS (10)
  - Dehydration [None]
  - Abdominal pain [None]
  - Nausea [None]
  - Urinary tract infection [None]
  - Abnormal faeces [None]
  - Vomiting [None]
  - Haematochezia [None]
  - Dyspnoea [None]
  - Pyrexia [None]
  - Flank pain [None]

NARRATIVE: CASE EVENT DATE: 20250324
